FAERS Safety Report 14573122 (Version 6)
Quarter: 2018Q3

REPORT INFORMATION
  Report Type: Spontaneous
  Country: FR (occurrence: FR)
  Receive Date: 20180226
  Receipt Date: 20180816
  Transmission Date: 20181010
  Serious: Yes (Hospitalization, Other)
  Sender: FDA-Public Use
  Company Number: FR-SA-2018SA049203

PATIENT
  Age: 75 Year
  Sex: Male
  Weight: 88 kg

DRUGS (30)
  1. FUROSEMIDE. [Suspect]
     Active Substance: FUROSEMIDE
     Dosage: 2 DF,QD
     Route: 048
  2. XARELTO [Suspect]
     Active Substance: RIVAROXABAN
     Indication: ATRIAL FIBRILLATION
     Dosage: 20 MG,QD
     Route: 048
     Dates: start: 20170824, end: 20171025
  3. DIFFU K [Suspect]
     Active Substance: POTASSIUM CHLORIDE
     Dosage: 6 DF,QD
     Route: 048
     Dates: start: 20170824, end: 20171003
  4. PANTOPRAZOLE [Suspect]
     Active Substance: PANTOPRAZOLE
     Dosage: 20 MG,QD
     Route: 048
     Dates: start: 20150101, end: 20171025
  5. TAVANIC [Suspect]
     Active Substance: LEVOFLOXACIN
     Dosage: 500 MG,QD
     Route: 048
     Dates: start: 20170905, end: 20170919
  6. TERBUTALINE SULFATE. [Suspect]
     Active Substance: TERBUTALINE SULFATE
     Indication: LUNG DISORDER
     Dosage: 1 DF,QD
     Route: 055
     Dates: start: 20170914, end: 20170921
  7. NEFOPAM HYDROCHLORIDE [Suspect]
     Active Substance: NEFOPAM HYDROCHLORIDE
     Dosage: 3 DF,QD
     Route: 048
  8. DAFALGAN [Suspect]
     Active Substance: ACETAMINOPHEN
     Dosage: 1000 MG,TID
     Route: 048
     Dates: start: 20171019
  9. BISOPROLOL HEMIFUMARATE [Suspect]
     Active Substance: BISOPROLOL FUMARATE
     Indication: HYPERTENSION
     Dosage: 1.25 MG,QD
     Route: 048
     Dates: start: 20171006
  10. FUROSEMIDE. [Suspect]
     Active Substance: FUROSEMIDE
     Dosage: 30 MG,BID
     Route: 048
     Dates: start: 20170825, end: 20171003
  11. METFORMIN HYDROCHLORIDE. [Suspect]
     Active Substance: METFORMIN HYDROCHLORIDE
     Indication: DIABETES MELLITUS
     Dosage: 500 MG,QD
     Route: 048
     Dates: start: 20170824, end: 20171025
  12. METFORMIN HYDROCHLORIDE. [Suspect]
     Active Substance: METFORMIN HYDROCHLORIDE
     Dosage: 1000 MG,QD
     Route: 048
     Dates: start: 20170824, end: 20171025
  13. VALIUM [Suspect]
     Active Substance: DIAZEPAM
     Dosage: 10 MG,TID
     Route: 048
     Dates: start: 20170101, end: 20170927
  14. COLCHICINE OPOCALCIUM [Suspect]
     Active Substance: COLCHICINE
     Indication: GOUT
     Dosage: 1 MG,QD
     Route: 048
     Dates: start: 20170914, end: 20170921
  15. IRBESARTAN. [Suspect]
     Active Substance: IRBESARTAN
     Indication: HYPERTENSION
     Dosage: 300 MG,QD
     Route: 048
     Dates: start: 2015, end: 20171006
  16. MIRTAZAPINE. [Suspect]
     Active Substance: MIRTAZAPINE
     Indication: DEPRESSIVE SYMPTOM
     Dosage: 15 MG,QD
     Route: 048
     Dates: start: 20170910
  17. NEFOPAM HYDROCHLORIDE [Suspect]
     Active Substance: NEFOPAM HYDROCHLORIDE
     Indication: PAIN
     Dosage: 1 DF,QD
     Route: 048
  18. DIAZEPAM. [Suspect]
     Active Substance: DIAZEPAM
     Indication: DEPRESSIVE SYMPTOM
     Dosage: 30 MG,QD
     Route: 048
     Dates: start: 20170101, end: 20170927
  19. ALPRAZOLAM. [Suspect]
     Active Substance: ALPRAZOLAM
     Dosage: .75 MG,TID
     Route: 048
     Dates: start: 20170928
  20. AMLODIPINE BESILATE [Suspect]
     Active Substance: AMLODIPINE BESYLATE
     Indication: HYPERTENSION
     Dosage: 10 MG,QD
     Route: 048
     Dates: start: 20170825, end: 20170927
  21. TAVANIC [Suspect]
     Active Substance: LEVOFLOXACIN
     Indication: LUNG DISORDER
     Dosage: 250 MG,QD
     Route: 048
     Dates: start: 20170905, end: 20170919
  22. DAFALGAN [Suspect]
     Active Substance: ACETAMINOPHEN
     Indication: PAIN
     Dosage: 3000 MG,QD
     Route: 048
     Dates: start: 20171009
  23. PANTOPRAZOLE [Suspect]
     Active Substance: PANTOPRAZOLE
     Indication: GASTROOESOPHAGEAL REFLUX DISEASE
     Dosage: 20 MG,QD
     Route: 048
     Dates: start: 2015, end: 20171025
  24. DIFFU K [Suspect]
     Active Substance: POTASSIUM CHLORIDE
     Indication: HYPOKALAEMIA
     Dosage: 3 DF,QD
     Route: 048
     Dates: start: 20170824, end: 20171003
  25. SEROPLEX [Suspect]
     Active Substance: ESCITALOPRAM OXALATE
     Indication: DEPRESSIVE SYMPTOM
     Dosage: 1 DF,QD
     Route: 048
     Dates: start: 20170101, end: 20170910
  26. NEFOPAM HYDROCHLORIDE [Suspect]
     Active Substance: NEFOPAM HYDROCHLORIDE
     Dosage: 3 DF,TID
     Route: 048
  27. ALPRAZOLAM. [Suspect]
     Active Substance: ALPRAZOLAM
     Indication: DEPRESSIVE SYMPTOM
     Dosage: 0.25 MG,QD
     Route: 048
     Dates: start: 20170928
  28. IRBESARTAN. [Suspect]
     Active Substance: IRBESARTAN
     Dosage: 300 MG,QD
     Route: 048
     Dates: start: 20150101, end: 20171006
  29. VALIUM [Suspect]
     Active Substance: DIAZEPAM
     Indication: DEPRESSIVE SYMPTOM
     Dosage: 3 DF,UNK
     Route: 065
     Dates: start: 20170101, end: 20170927
  30. FUROSEMIDE. [Suspect]
     Active Substance: FUROSEMIDE
     Indication: HYPERTENSION
     Dosage: 30 MG,QD
     Route: 048
     Dates: start: 20170825, end: 20171003

REACTIONS (1)
  - Agranulocytosis [Recovered/Resolved]

NARRATIVE: CASE EVENT DATE: 20171024
